FAERS Safety Report 5790345-5 (Version None)
Quarter: 2008Q2

REPORT INFORMATION
  Report Type: 
  Country: None (occurrence: None)
  Receive Date: 20080626
  Receipt Date: 20080425
  Transmission Date: 20081010
  Serious: No
  Sender: FDA-Public Use
  Company Number: A0724791A

PATIENT
  Age: 70 Year
  Sex: Male

DRUGS (2)
  1. ALLI [Suspect]
  2. SOTALOL HCL [Concomitant]

REACTIONS (3)
  - ASTHENIA [None]
  - FATIGUE [None]
  - THERAPEUTIC RESPONSE UNEXPECTED [None]
